FAERS Safety Report 13839385 (Version 1)
Quarter: 2017Q3

REPORT INFORMATION
  Report Type: Spontaneous
  Country: US (occurrence: US)
  Receive Date: 20170805
  Receipt Date: 20170805
  Transmission Date: 20171127
  Serious: Yes (Hospitalization)
  Sender: FDA-Public Use
  Company Number: None

PATIENT
  Age: 69 Year
  Sex: Female

DRUGS (11)
  1. APIXABAN [Suspect]
     Active Substance: APIXABAN
     Indication: ATRIAL FIBRILLATION
     Dosage: 5 MG  EVERY 12 HOURS PO
     Route: 048
     Dates: start: 20141101, end: 20161104
  2. ATENOLOL. [Concomitant]
     Active Substance: ATENOLOL
  3. PSYLLIUM [Concomitant]
     Active Substance: PLANTAGO SEED
  4. ALBUTEROL. [Concomitant]
     Active Substance: ALBUTEROL
  5. LACTOBACILLUS GRANULES [Concomitant]
  6. LEVOTHYROXINE. [Concomitant]
     Active Substance: LEVOTHYROXINE
  7. MELATONIN [Concomitant]
     Active Substance: MELATONIN
  8. BECLOMETHASONE [Concomitant]
     Active Substance: BECLOMETHASONE
  9. CHOLECALCIFEROL [Concomitant]
     Active Substance: CHOLECALCIFEROL
  10. DOCUSATE [Concomitant]
     Active Substance: DOCUSATE
  11. OMEPRAZOLE. [Concomitant]
     Active Substance: OMEPRAZOLE

REACTIONS (5)
  - Haemorrhoids [None]
  - Rectal haemorrhage [None]
  - Haemoglobin decreased [None]
  - Dyspnoea [None]
  - Asthenia [None]

NARRATIVE: CASE EVENT DATE: 20161104
